FAERS Safety Report 4861255-2 (Version None)
Quarter: 2005Q4

REPORT INFORMATION
  Report Type: 
  Country: None (occurrence: None)
  Receive Date: 20051220
  Receipt Date: 20050815
  Transmission Date: 20060501
  Serious: Yes (Hospitalization)
  Sender: FDA-Public Use
  Company Number: US-MERCK-0508USA02640

PATIENT
  Age: 50 Year
  Sex: Male
  Weight: 182 kg

DRUGS (3)
  1. VIOXX [Suspect]
     Indication: ARTHRALGIA
     Route: 048
     Dates: start: 19990101, end: 20010101
  2. VIOXX [Suspect]
     Indication: MONARTHRITIS
     Route: 048
     Dates: start: 19990101, end: 20010101
  3. ADVIL [Concomitant]
     Route: 065

REACTIONS (7)
  - ARTHROPATHY [None]
  - EMOTIONAL DISTRESS [None]
  - MYOCARDIAL INFARCTION [None]
  - OBESITY [None]
  - POLYTRAUMATISM [None]
  - THROMBOSIS [None]
  - ULCER HAEMORRHAGE [None]
